FAERS Safety Report 22667034 (Version 2)
Quarter: 2023Q4

REPORT INFORMATION
  Report Type: Report from Study
  Country: US (occurrence: US)
  Receive Date: 20230704
  Receipt Date: 20231102
  Transmission Date: 20240110
  Serious: Yes (Hospitalization)
  Sender: FDA-Public Use
  Company Number: US-JNJFOC-20230670841

PATIENT
  Age: 3 Decade
  Sex: Female
  Weight: 57.658 kg

DRUGS (2)
  1. INFLIXIMAB [Suspect]
     Active Substance: INFLIXIMAB
     Indication: Inflammatory bowel disease
     Route: 041
     Dates: start: 20090511, end: 20130227
  2. SKYRIZI [Concomitant]
     Active Substance: RISANKIZUMAB-RZAA
     Dates: start: 202303

REACTIONS (2)
  - Renal disorder [Recovered/Resolved]
  - Ureteral disorder [Recovered/Resolved]

NARRATIVE: CASE EVENT DATE: 20230401
